FAERS Safety Report 16813920 (Version 1)
Quarter: 2019Q3

REPORT INFORMATION
  Report Type: Spontaneous
  Country: CA (occurrence: CA)
  Receive Date: 20190917
  Receipt Date: 20190917
  Transmission Date: 20191005
  Serious: Yes (Other)
  Sender: FDA-Public Use
  Company Number: CA-BAXTER-2019BAX017853

PATIENT
  Sex: Female

DRUGS (30)
  1. ABRAXANE [Suspect]
     Active Substance: PACLITAXEL
     Indication: BREAST CANCER METASTATIC
  2. EXEMESTANE. [Suspect]
     Active Substance: EXEMESTANE
     Indication: OESTROGEN RECEPTOR POSITIVE BREAST CANCER
     Dosage: DOSAGE FORM: TABLET
     Route: 065
  3. FLUOROURACIL. [Suspect]
     Active Substance: FLUOROURACIL
     Indication: HUMAN EPIDERMAL GROWTH FACTOR RECEPTOR NEGATIVE
  4. TAXOL [Suspect]
     Active Substance: PACLITAXEL
     Indication: BREAST CANCER METASTATIC
  5. LETROZOLE. [Suspect]
     Active Substance: LETROZOLE
     Indication: HUMAN EPIDERMAL GROWTH FACTOR RECEPTOR NEGATIVE
  6. XELODA [Suspect]
     Active Substance: CAPECITABINE
     Indication: OESTROGEN RECEPTOR POSITIVE BREAST CANCER
     Dosage: DOSAGE FORM: TABLET
     Route: 065
  7. PMS-EPIRUBICIN [Suspect]
     Active Substance: EPIRUBICIN HYDROCHLORIDE
     Indication: HUMAN EPIDERMAL GROWTH FACTOR RECEPTOR NEGATIVE
     Dosage: DOSAGE FORM: SOLUTION INTRAVENOUS.
     Route: 065
  8. TAMOXIFEN [Suspect]
     Active Substance: TAMOXIFEN
     Indication: HUMAN EPIDERMAL GROWTH FACTOR RECEPTOR NEGATIVE
     Route: 065
  9. TAMOXIFEN [Suspect]
     Active Substance: TAMOXIFEN
     Indication: BREAST CANCER METASTATIC
  10. XELODA [Suspect]
     Active Substance: CAPECITABINE
     Indication: HUMAN EPIDERMAL GROWTH FACTOR RECEPTOR NEGATIVE
  11. PROCYTOX (CYCLOPHOSPHAMIDE) 2000MG/VIAL [Suspect]
     Active Substance: CYCLOPHOSPHAMIDE
     Indication: OESTROGEN RECEPTOR POSITIVE BREAST CANCER
     Dosage: DOSAGE FORM: NOT SPECIFIED
     Route: 041
  12. EXEMESTANE. [Suspect]
     Active Substance: EXEMESTANE
     Indication: HUMAN EPIDERMAL GROWTH FACTOR RECEPTOR NEGATIVE
  13. EXEMESTANE. [Suspect]
     Active Substance: EXEMESTANE
     Indication: BREAST CANCER METASTATIC
  14. LETROZOLE. [Suspect]
     Active Substance: LETROZOLE
     Indication: OESTROGEN RECEPTOR POSITIVE BREAST CANCER
     Dosage: DOSAGE FORM: TABLET
     Route: 065
  15. XELODA [Suspect]
     Active Substance: CAPECITABINE
     Indication: BREAST CANCER METASTATIC
  16. PROCYTOX (CYCLOPHOSPHAMIDE) 2000MG/VIAL [Suspect]
     Active Substance: CYCLOPHOSPHAMIDE
     Indication: BREAST CANCER METASTATIC
  17. ABRAXANE [Suspect]
     Active Substance: PACLITAXEL
     Indication: OESTROGEN RECEPTOR POSITIVE BREAST CANCER
     Dosage: FOR INJECTABLE SUSPENSION, DOSAGE FORM: POWDER FOR SUSPENSION INTRAVENOUS
     Route: 041
  18. FLUOROURACIL. [Suspect]
     Active Substance: FLUOROURACIL
     Indication: OESTROGEN RECEPTOR POSITIVE BREAST CANCER
     Dosage: DOSAGE FORM: NOT SPECIFIED
     Route: 065
  19. FULVESTRANT. [Suspect]
     Active Substance: FULVESTRANT
     Indication: OESTROGEN RECEPTOR POSITIVE BREAST CANCER
     Route: 065
  20. FULVESTRANT. [Suspect]
     Active Substance: FULVESTRANT
     Indication: HUMAN EPIDERMAL GROWTH FACTOR RECEPTOR NEGATIVE
  21. PMS-EPIRUBICIN [Suspect]
     Active Substance: EPIRUBICIN HYDROCHLORIDE
     Indication: OESTROGEN RECEPTOR POSITIVE BREAST CANCER
     Dosage: DOSAGE FORM: SOLUTION INTRAVENOUS.
     Route: 041
  22. LETROZOLE. [Suspect]
     Active Substance: LETROZOLE
     Indication: BREAST CANCER METASTATIC
  23. TAXOL [Suspect]
     Active Substance: PACLITAXEL
     Indication: OESTROGEN RECEPTOR POSITIVE BREAST CANCER
     Dosage: DOSAGE FORM: SOLUTION INTRAVENOUS.
     Route: 030
  24. ABRAXANE [Suspect]
     Active Substance: PACLITAXEL
     Indication: HUMAN EPIDERMAL GROWTH FACTOR RECEPTOR NEGATIVE
     Dosage: FOR INJECTABLE SUSPENSION, DOSAGE FORM: POWDER FOR SUSPENSION INTRAVENOUS
     Route: 065
  25. FLUOROURACIL. [Suspect]
     Active Substance: FLUOROURACIL
     Indication: BREAST CANCER METASTATIC
  26. FULVESTRANT. [Suspect]
     Active Substance: FULVESTRANT
     Indication: BREAST CANCER METASTATIC
  27. PMS-EPIRUBICIN [Suspect]
     Active Substance: EPIRUBICIN HYDROCHLORIDE
     Indication: BREAST CANCER METASTATIC
  28. TAMOXIFEN [Suspect]
     Active Substance: TAMOXIFEN
     Indication: OESTROGEN RECEPTOR POSITIVE BREAST CANCER
     Dosage: DOSAGE FORM: TABLET
     Route: 065
  29. PROCYTOX (CYCLOPHOSPHAMIDE) 2000MG/VIAL [Suspect]
     Active Substance: CYCLOPHOSPHAMIDE
     Indication: HUMAN EPIDERMAL GROWTH FACTOR RECEPTOR NEGATIVE
     Dosage: 2000 MG/ VIAL, DOSAGE FORM: POWDER FOR SOLUTION INTRAVENOUS.
     Route: 065
  30. TAXOL [Suspect]
     Active Substance: PACLITAXEL
     Indication: HUMAN EPIDERMAL GROWTH FACTOR RECEPTOR NEGATIVE

REACTIONS (3)
  - Oestrogen receptor positive breast cancer [Unknown]
  - Metastasis [Unknown]
  - Disease progression [Unknown]
